FAERS Safety Report 4955855-9 (Version None)
Quarter: 2006Q1

REPORT INFORMATION
  Report Type: 
  Country: None (occurrence: None)
  Receive Date: 20060327
  Receipt Date: 20060327
  Transmission Date: 20060701
  Serious: No
  Sender: FDA-Public Use
  Company Number: None

PATIENT
  Age: 64 Year
  Sex: Male
  Weight: 68.5 kg

DRUGS (2)
  1. DROTRECOGIN [Suspect]
     Indication: PNEUMONIA
     Dosage: 0.4 MCG/KG/HOUR CONTINOUS INFUSIO IV DRIP
     Route: 041
     Dates: start: 20051129, end: 20051201
  2. DROTRECOGIN [Suspect]
     Indication: SEPSIS
     Dosage: 0.4 MCG/KG/HOUR CONTINOUS INFUSIO IV DRIP
     Route: 041
     Dates: start: 20051129, end: 20051201

REACTIONS (1)
  - HAEMATURIA [None]
